FAERS Safety Report 20061858 (Version 1)
Quarter: 2021Q4

REPORT INFORMATION
  Report Type: Spontaneous
  Country: JP (occurrence: JP)
  Receive Date: 20211112
  Receipt Date: 20211112
  Transmission Date: 20220303
  Serious: Yes (Hospitalization)
  Sender: FDA-Public Use
  Company Number: JP-ELI_LILLY_AND_COMPANY-JP202111002359

PATIENT
  Age: 88 Year
  Sex: Female

DRUGS (5)
  1. TRULICITY [Suspect]
     Active Substance: DULAGLUTIDE
     Indication: Type 2 diabetes mellitus
     Dosage: 0.75 MG, WEEKLY (1/W)
     Route: 058
  2. INSULIN GLARGINE [Suspect]
     Active Substance: INSULIN GLARGINE
     Indication: Type 2 diabetes mellitus
     Dosage: 16 U, DAILY
     Route: 065
  3. INSULIN GLARGINE [Suspect]
     Active Substance: INSULIN GLARGINE
     Dosage: 8 U, DAILY
     Route: 065
  4. LINAGLIPTIN [Suspect]
     Active Substance: LINAGLIPTIN
     Indication: Type 2 diabetes mellitus
     Dosage: 5 MG, DAILY
     Route: 048
  5. REPAGLINIDE [Concomitant]
     Active Substance: REPAGLINIDE

REACTIONS (11)
  - Weight decreased [Not Recovered/Not Resolved]
  - Diet refusal [Recovering/Resolving]
  - Agnosia [Unknown]
  - Apraxia [Unknown]
  - Reduced facial expression [Recovering/Resolving]
  - Urinary incontinence [Unknown]
  - Irritability [Recovering/Resolving]
  - Hypophagia [Recovering/Resolving]
  - Fluid intake reduced [Recovering/Resolving]
  - Pemphigoid [Recovered/Resolved]
  - Hypoglycaemia [Recovered/Resolved]
